FAERS Safety Report 6079366-5 (Version None)
Quarter: 2009Q1

REPORT INFORMATION
  Report Type: 
  Country: None (occurrence: None)
  Receive Date: 20090216
  Receipt Date: 20090209
  Transmission Date: 20090719
  Serious: Yes (Death, Life-Threatening, Disabling)
  Sender: FDA-Public Use
  Company Number: JP-ASTRAZENECA-2005AP05576

PATIENT
  Age: 73 Year
  Sex: Male
  Weight: 54 kg

DRUGS (2)
  1. DIPRIVAN [Suspect]
     Indication: SEDATION
     Dosage: DOSE UNKNOWN
     Route: 042
     Dates: start: 20051020
  2. DIAZEPAM [Concomitant]
     Indication: SEDATION
     Route: 065

REACTIONS (1)
  - CARDIO-RESPIRATORY ARREST [None]
